FAERS Safety Report 23085696 (Version 4)
Quarter: 2023Q4

REPORT INFORMATION
  Report Type: Spontaneous
  Country: FR (occurrence: FR)
  Receive Date: 20231019
  Receipt Date: 20231127
  Transmission Date: 20240109
  Serious: Yes (Other)
  Sender: FDA-Public Use
  Company Number: None

PATIENT
  Sex: Female

DRUGS (1)
  1. IVERMECTIN [Suspect]
     Active Substance: IVERMECTIN
     Indication: Product used for unknown indication
     Dosage: 2*5 TABLET WEEK APART
     Route: 065

REACTIONS (3)
  - Angioedema [Unknown]
  - Intentional product use issue [Unknown]
  - Intentional product misuse [Unknown]
